FAERS Safety Report 20628747 (Version 1)
Quarter: 2022Q1

REPORT INFORMATION
  Report Type: Spontaneous
  Country: US (occurrence: None)
  Receive Date: 20220323
  Receipt Date: 20220323
  Transmission Date: 20220423
  Serious: Yes (Disabling, Other)
  Sender: FDA-Public Use
  Company Number: None

PATIENT
  Age: 66 Year
  Sex: Female
  Weight: 61.23 kg

DRUGS (20)
  1. ALENDRONATE SODIUM [Suspect]
     Active Substance: ALENDRONATE SODIUM
     Indication: Osteopenia
     Dosage: FREQUENCY : WEEKLY;?
     Route: 048
     Dates: start: 20210905, end: 20210912
  2. ADVAIR HFA [Concomitant]
     Active Substance: FLUTICASONE PROPIONATE\SALMETEROL XINAFOATE
  3. UNSPECIFIED INGREDIENT [Concomitant]
     Active Substance: UNSPECIFIED INGREDIENT
  4. XARELTO [Concomitant]
     Active Substance: RIVAROXABAN
  5. BENTYL [Concomitant]
     Active Substance: DICYCLOMINE HYDROCHLORIDE
  6. Colestim [Concomitant]
  7. REMERON [Concomitant]
     Active Substance: MIRTAZAPINE
  8. ALBUTEROL SULFATE [Concomitant]
     Active Substance: ALBUTEROL SULFATE
  9. IMODIUM [Concomitant]
     Active Substance: LOPERAMIDE HYDROCHLORIDE
  10. ALIGN [Concomitant]
     Active Substance: BIFIDOBACTERIUM LONGUM SUBSP. INFANTIS
  11. Citrocal [Concomitant]
  12. CYCLOSPORINE [Concomitant]
     Active Substance: CYCLOSPORINE
  13. MONTELUKAST SODIUM [Concomitant]
     Active Substance: MONTELUKAST SODIUM
  14. LAMICTAL [Concomitant]
     Active Substance: LAMOTRIGINE
  15. Levisin [Concomitant]
  16. MACROBID [Concomitant]
     Active Substance: NITROFURANTOIN\NITROFURANTOIN MONOHYDRATE
  17. PEPCID AC [Concomitant]
     Active Substance: FAMOTIDINE
  18. BIOTIN [Concomitant]
     Active Substance: BIOTIN
  19. VITAMIN D3 [Concomitant]
     Active Substance: CHOLECALCIFEROL
  20. VITAMIN B12 [Concomitant]
     Active Substance: CYANOCOBALAMIN

REACTIONS (8)
  - Joint dislocation [None]
  - Hypersensitivity [None]
  - Joint swelling [None]
  - Joint swelling [None]
  - Peripheral swelling [None]
  - Pain [None]
  - Erythema [None]
  - Joint noise [None]

NARRATIVE: CASE EVENT DATE: 20211209
